FAERS Safety Report 23152165 (Version 2)
Quarter: 2023Q4

REPORT INFORMATION
  Report Type: Spontaneous
  Country: US (occurrence: US)
  Receive Date: 20231107
  Receipt Date: 20231204
  Transmission Date: 20240110
  Serious: No
  Sender: FDA-Public Use
  Company Number: US-OPELLA-2023OHG010997

PATIENT
  Age: 69 Year
  Sex: Male
  Weight: 93.44 kg

DRUGS (1)
  1. ICY HOT WITH LIDOCAINE PAIN RELIEVING [Suspect]
     Active Substance: LIDOCAINE\MENTHOL
     Indication: Rotator cuff syndrome
     Route: 061
     Dates: start: 20231018, end: 20231028

REACTIONS (2)
  - Therapeutic response shortened [Unknown]
  - No adverse event [Unknown]

NARRATIVE: CASE EVENT DATE: 20231018
